FAERS Safety Report 10986192 (Version 1)
Quarter: 2015Q1

REPORT INFORMATION
  Report Type: Spontaneous
  Country: US (occurrence: None)
  Receive Date: 20150313
  Receipt Date: 20150313
  Transmission Date: 20150721
  Serious: Yes (Other)
  Sender: FDA-Public Use
  Company Number: 1463881

PATIENT
  Age: 41 Year
  Sex: Female

DRUGS (7)
  1. ZANTAC [Concomitant]
     Active Substance: RANITIDINE HYDROCHLORIDE
  2. LEVOXYL (LEVOTHYROXINE SODIUM) [Concomitant]
  3. ORTHO-NOVUM (ETHINYL ESTRADIL OR MESTRANOL, NORETHISTERONE) [Concomitant]
  4. SINGULAIR (MONTELUKAST SODIUM) [Concomitant]
  5. XOLAIR [Suspect]
     Active Substance: OMALIZUMAB
     Indication: URTICARIA CHRONIC
     Dates: start: 20140915
  6. PROMETHAZINE [Concomitant]
     Active Substance: PROMETHAZINE\PROMETHAZINE HYDROCHLORIDE
  7. BENADRYL (UNITED STATES) (DIPHENHYDRAMINE HYDROCHLORIDE) [Concomitant]

REACTIONS (7)
  - Chills [None]
  - Diarrhoea [None]
  - Urticaria [None]
  - Pyrexia [None]
  - Nausea [None]
  - Dizziness [None]
  - Abdominal pain upper [None]

NARRATIVE: CASE EVENT DATE: 20140915
